FAERS Safety Report 7604539-7 (Version None)
Quarter: 2011Q3

REPORT INFORMATION
  Report Type: 
  Country: None (occurrence: None)
  Receive Date: 20110712
  Receipt Date: 20110705
  Transmission Date: 20111222
  Serious: Yes (Hospitalization, Other)
  Sender: FDA-Public Use
  Company Number: PHHY2011JP32855

PATIENT
  Age: 86 Year
  Sex: Male

DRUGS (6)
  1. CYCLOSERINE [Concomitant]
     Indication: PULMONARY TUBERCULOSIS
     Route: 048
  2. LEVOFLOXACIN [Concomitant]
     Indication: PULMONARY TUBERCULOSIS
  3. PYRAZINAMIDE [Concomitant]
     Indication: PULMONARY TUBERCULOSIS
     Route: 048
  4. ETHAMBUTOL HYDROCHLORIDE [Concomitant]
     Indication: PULMONARY TUBERCULOSIS
     Route: 048
  5. RIFAMPICIN [Suspect]
     Indication: PULMONARY TUBERCULOSIS
     Dosage: 450 MG, DAILY
     Route: 048
     Dates: start: 20090709, end: 20090728
  6. ISONIAZID [Suspect]
     Indication: PULMONARY TUBERCULOSIS
     Dosage: 200 MG, DAILY
     Dates: start: 20090709, end: 20090728

REACTIONS (5)
  - PURPURA [None]
  - LUNG NEOPLASM [None]
  - LIVER DISORDER [None]
  - PNEUMONIA [None]
  - PYREXIA [None]
